FAERS Safety Report 10516596 (Version 1)
Quarter: 2014Q4

REPORT INFORMATION
  Report Type: Spontaneous
  Country: US (occurrence: US)
  Receive Date: 20141014
  Receipt Date: 20141014
  Transmission Date: 20150528
  Serious: Yes (Death, Hospitalization, Other)
  Sender: FDA-Public Use
  Company Number: US-GILEAD-2014-0118157

PATIENT
  Age: 61 Year
  Sex: Female

DRUGS (26)
  1. NITRIC OXIDE. [Concomitant]
     Active Substance: NITRIC OXIDE
  2. LEVOTHYROXINE [Concomitant]
     Active Substance: LEVOTHYROXINE
  3. MOMETASONE [Concomitant]
     Active Substance: MOMETASONE
  4. POLYMYXIN B [Concomitant]
     Active Substance: POLYMYXIN B
  5. LOVENOX [Concomitant]
     Active Substance: ENOXAPARIN SODIUM
     Indication: PULMONARY EMBOLISM
  6. OCTREOTIDE [Concomitant]
     Active Substance: OCTREOTIDE
  7. ENOXAPARIN [Concomitant]
     Active Substance: ENOXAPARIN
  8. COUMADIN [Concomitant]
     Active Substance: WARFARIN SODIUM
     Indication: PULMONARY EMBOLISM
  9. PROTONIX [Concomitant]
     Active Substance: PANTOPRAZOLE SODIUM
  10. ALBUTEROL                          /00139501/ [Concomitant]
     Active Substance: ALBUTEROL
  11. FAMOTIDINE. [Concomitant]
     Active Substance: FAMOTIDINE
  12. FORMOTEROL [Concomitant]
     Active Substance: FORMOTEROL
  13. CIPROFLOXACIN. [Concomitant]
     Active Substance: CIPROFLOXACIN
     Indication: HEPATIC ENCEPHALOPATHY
  14. CEFOTAXIME [Concomitant]
     Active Substance: CEFOTAXIME\CEFOTAXIME SODIUM
     Indication: PERITONITIS BACTERIAL
  15. LETAIRIS [Suspect]
     Active Substance: AMBRISENTAN
     Indication: PULMONARY HYPERTENSION
     Dosage: 5 MG, QD
     Route: 048
     Dates: start: 20140911, end: 20140918
  16. LACTULOSE. [Concomitant]
     Active Substance: LACTULOSE
     Indication: PERITONITIS BACTERIAL
  17. SILDENAFIL. [Concomitant]
     Active Substance: SILDENAFIL
  18. MULTIVITAMIN                       /00097801/ [Concomitant]
     Active Substance: VITAMINS
  19. CIPROFLOXACIN. [Concomitant]
     Active Substance: CIPROFLOXACIN
     Indication: PERITONITIS BACTERIAL
  20. OXYGEN. [Concomitant]
     Active Substance: OXYGEN
     Indication: DYSPNOEA
  21. THIAMINE [Concomitant]
     Active Substance: THIAMINE
  22. LACTULOSE. [Concomitant]
     Active Substance: LACTULOSE
     Indication: HEPATIC ENCEPHALOPATHY
  23. FOLIC ACID. [Concomitant]
     Active Substance: FOLIC ACID
  24. FUROSEMIDE. [Concomitant]
     Active Substance: FUROSEMIDE
  25. ADVIL [Concomitant]
     Active Substance: IBUPROFEN
  26. TRIMETHOPRIM. [Concomitant]
     Active Substance: TRIMETHOPRIM

REACTIONS (5)
  - Pulmonary hypertension [Fatal]
  - Upper gastrointestinal haemorrhage [Unknown]
  - Respiratory failure [Fatal]
  - Duodenal ulcer [Unknown]
  - Ventilation perfusion mismatch [Fatal]
